FAERS Safety Report 14857133 (Version 1)
Quarter: 2018Q2

REPORT INFORMATION
  Report Type: Spontaneous
  Country: FR (occurrence: FR)
  Receive Date: 20180507
  Receipt Date: 20180507
  Transmission Date: 20180711
  Serious: Yes (Other)
  Sender: FDA-Public Use
  Company Number: FR-MERCK KGAA-2047338

PATIENT
  Sex: Female

DRUGS (1)
  1. NOVOTHYROX [Suspect]
     Active Substance: LEVOTHYROXINE SODIUM
     Indication: THYROID DISORDER

REACTIONS (29)
  - Emotional distress [None]
  - Condition aggravated [None]
  - Muscle spasms [Recovered/Resolved]
  - Ill-defined disorder [None]
  - Tendon pain [None]
  - Decreased interest [Recovered/Resolved]
  - Overdose [None]
  - Shock [None]
  - Gait disturbance [None]
  - Loss of personal independence in daily activities [None]
  - Personal relationship issue [None]
  - Hypertension [Recovered/Resolved]
  - Insomnia [Recovered/Resolved]
  - Coordination abnormal [Recovered/Resolved]
  - Arthralgia [Recovered/Resolved]
  - Impaired driving ability [None]
  - Tendonitis [Recovered/Resolved]
  - Parkinson^s disease [Recovered/Resolved]
  - Depression [None]
  - Frustration tolerance decreased [None]
  - Myalgia [None]
  - Back pain [Recovered/Resolved]
  - Tendonitis [None]
  - Blood thyroid stimulating hormone decreased [None]
  - Bursitis [Recovered/Resolved]
  - Sleep disorder [Recovered/Resolved]
  - Alopecia [Recovered/Resolved]
  - Pain [Recovered/Resolved]
  - Social avoidant behaviour [None]
